FAERS Safety Report 12142142 (Version 2)
Quarter: 2016Q2

REPORT INFORMATION
  Report Type: Spontaneous
  Country: FR (occurrence: FR)
  Receive Date: 20160303
  Receipt Date: 20160520
  Transmission Date: 20160815
  Serious: Yes (Hospitalization, Other)
  Sender: FDA-Public Use
  Company Number: FR-SHIRE-FR201602317

PATIENT
  Age: 45 Year
  Sex: Female

DRUGS (8)
  1. PEGASYS [Suspect]
     Active Substance: PEGINTERFERON ALFA-2A
     Dosage: 45 ?G, 1X/WEEK
     Route: 058
     Dates: start: 201404
  2. PEGASYS [Suspect]
     Active Substance: PEGINTERFERON ALFA-2A
     Dosage: 135 ?G, 1X/WEEK
     Route: 058
     Dates: end: 201507
  3. XAGRID [Suspect]
     Active Substance: ANAGRELIDE HYDROCHLORIDE
     Indication: THROMBOCYTOSIS
     Dosage: 0.5 MG (FIVE IN ONE DAY), UNKNOWN
     Route: 048
     Dates: start: 20150915, end: 201510
  4. HYDREA [Concomitant]
     Active Substance: HYDROXYUREA
     Dosage: 2 DF, UNKNOWN
     Route: 048
     Dates: start: 20151116
  5. KARDEGIC [Concomitant]
     Active Substance: ASPIRIN LYSINE
     Indication: PRODUCT USED FOR UNKNOWN INDICATION
     Dosage: 75 MG, 1X/DAY:QD
     Route: 048
     Dates: start: 2003
  6. XAGRID [Suspect]
     Active Substance: ANAGRELIDE HYDROCHLORIDE
     Dosage: 1 MG (TWO TABLETS), UNKNOWN (/DAY)
     Route: 048
     Dates: start: 201507
  7. PEGASYS [Suspect]
     Active Substance: PEGINTERFERON ALFA-2A
     Indication: MYELOPROLIFERATIVE NEOPLASM
     Dosage: 6.4286 ?G (45 ?G, 1 IN 1 WEEK), OTHER
     Route: 058
     Dates: start: 20150915, end: 201510
  8. HYDREA [Concomitant]
     Active Substance: HYDROXYUREA
     Indication: PRODUCT USED FOR UNKNOWN INDICATION
     Dosage: 500 MG, 1X/DAY:QD
     Route: 048
     Dates: start: 2003

REACTIONS (1)
  - Posterior reversible encephalopathy syndrome [Recovering/Resolving]

NARRATIVE: CASE EVENT DATE: 20151022
